FAERS Safety Report 15737522 (Version 3)
Quarter: 2019Q1

REPORT INFORMATION
  Report Type: Spontaneous
  Country: PL (occurrence: PL)
  Receive Date: 20181219
  Receipt Date: 20190222
  Transmission Date: 20190417
  Serious: Yes (Hospitalization, Other)
  Sender: FDA-Public Use
  Company Number: PHHY2018PL183323

PATIENT
  Age: 47 Year
  Sex: Male

DRUGS (37)
  1. PREDNISONE. [Suspect]
     Active Substance: PREDNISONE
     Dosage: 20 MG, UNK
     Route: 065
     Dates: start: 201701
  2. MYCOPHENOLATE MOFETIL. [Suspect]
     Active Substance: MYCOPHENOLATE MOFETIL
     Dosage: 2 G, QD
     Route: 065
     Dates: start: 201605
  3. FLUCONAZOLE. [Concomitant]
     Active Substance: FLUCONAZOLE
     Indication: ANTIFUNGAL TREATMENT
     Route: 065
  4. PREDNISONE. [Suspect]
     Active Substance: PREDNISONE
     Dosage: 60 MG, UNK
     Route: 065
     Dates: start: 201408
  5. PREDNISONE. [Suspect]
     Active Substance: PREDNISONE
     Dosage: 50 MG, UNK
     Route: 065
     Dates: end: 201701
  6. MYCOPHENOLATE MOFETIL. [Suspect]
     Active Substance: MYCOPHENOLATE MOFETIL
     Dosage: 3 G, QD
     Route: 065
     Dates: start: 201701
  7. MYCOPHENOLATE MOFETIL. [Suspect]
     Active Substance: MYCOPHENOLATE MOFETIL
     Dosage: THREE PULSES (750- 1000- 1000 MG)
     Route: 065
  8. AMOXICILLIN. [Concomitant]
     Active Substance: AMOXICILLIN
     Indication: PULMONARY ALVEOLAR HAEMORRHAGE
  9. IMMUNOGLOBULIN G HUMAN [Concomitant]
     Active Substance: HUMAN IMMUNOGLOBULIN G
     Indication: PULMONARY ALVEOLAR HAEMORRHAGE
     Dosage: 50 G, QD; 50 G, DAILY FOR 5 DAYS
     Route: 042
     Dates: start: 201408
  10. PREDNISONE. [Suspect]
     Active Substance: PREDNISONE
     Dosage: 40 MG, UNK
     Route: 065
     Dates: start: 201605
  11. MYCOPHENOLATE MOFETIL. [Suspect]
     Active Substance: MYCOPHENOLATE MOFETIL
     Dosage: 2 G, QD
     Route: 065
     Dates: start: 201502
  12. PREDNISONE. [Suspect]
     Active Substance: PREDNISONE
     Dosage: 100 MG, QD
     Route: 065
     Dates: start: 201502
  13. PREDNISONE. [Suspect]
     Active Substance: PREDNISONE
     Dosage: 20 MG, UNK
     Route: 065
     Dates: start: 201605
  14. PREDNISONE. [Suspect]
     Active Substance: PREDNISONE
     Dosage: 80 MG, UNK
     Route: 065
     Dates: start: 201701
  15. MYCOPHENOLATE MOFETIL. [Suspect]
     Active Substance: MYCOPHENOLATE MOFETIL
     Indication: BRONCHIAL HAEMORRHAGE
     Dosage: 1 G, QD
     Route: 065
     Dates: start: 201502
  16. MYCOPHENOLATE MOFETIL. [Suspect]
     Active Substance: MYCOPHENOLATE MOFETIL
     Dosage: 3 G, QD (GRADUALLY INCREASED)
     Route: 065
     Dates: start: 201504
  17. CYCLOPHOSPHAMIDE. [Suspect]
     Active Substance: CYCLOPHOSPHAMIDE
     Indication: BRONCHIAL HAEMORRHAGE
     Dosage: 1.5 G, Q4W (SIX PULSES)
     Route: 065
     Dates: start: 201407, end: 201502
  18. CLAVULANIC ACID [Concomitant]
     Active Substance: CLAVULANIC ACID
     Indication: PULMONARY ALVEOLAR HAEMORRHAGE
  19. CLARITHROMYCIN. [Concomitant]
     Active Substance: CLARITHROMYCIN
     Indication: ANTIBIOTIC THERAPY
     Dosage: UNK
     Route: 065
  20. WARFARIN [Concomitant]
     Active Substance: WARFARIN
     Indication: PULMONARY EMBOLISM
  21. PREDNISONE. [Suspect]
     Active Substance: PREDNISONE
     Indication: BRONCHIAL HAEMORRHAGE
     Dosage: 80 MG, UNK
     Route: 065
     Dates: start: 201312
  22. PREDNISONE. [Suspect]
     Active Substance: PREDNISONE
     Dosage: 55 MG, UNK
     Route: 065
     Dates: end: 201408
  23. PREDNISONE. [Suspect]
     Active Substance: PREDNISONE
     Dosage: 75 MG, UNK (HIGH GCS DOSE)
     Route: 065
     Dates: start: 201502
  24. METHYLPREDNISOLONE. [Suspect]
     Active Substance: METHYLPREDNISOLONE
     Indication: PULMONARY ALVEOLAR HAEMORRHAGE
     Dosage: 1000 MG, UNK
     Route: 065
     Dates: start: 201701
  25. WARFARIN [Concomitant]
     Active Substance: WARFARIN
     Indication: DEEP VEIN THROMBOSIS
     Dosage: UNK
     Route: 065
  26. FLUCONAZOLE. [Concomitant]
     Active Substance: FLUCONAZOLE
     Indication: PULMONARY ALVEOLAR HAEMORRHAGE
  27. PREDNISONE. [Suspect]
     Active Substance: PREDNISONE
     Indication: DYSPNOEA
     Dosage: 20 MG, UNK
     Route: 065
     Dates: start: 201401
  28. PREDNISONE. [Suspect]
     Active Substance: PREDNISONE
     Dosage: 25 MG, UNK
     Route: 065
     Dates: start: 201408
  29. PREDNISONE. [Suspect]
     Active Substance: PREDNISONE
     Dosage: 90 MG, UNK
     Route: 065
     Dates: end: 201502
  30. PREDNISONE. [Suspect]
     Active Substance: PREDNISONE
     Dosage: 65 MG, UNK
     Route: 065
     Dates: end: 201504
  31. PREDNISONE. [Suspect]
     Active Substance: PREDNISONE
     Dosage: 15 MG, UNK
     Route: 065
     Dates: start: 201504
  32. METHYLPREDNISOLONE. [Suspect]
     Active Substance: METHYLPREDNISOLONE
     Indication: BRONCHIAL HAEMORRHAGE
     Dosage: 500 MG, QD FOR 3 DAYS
     Route: 065
     Dates: start: 201408
  33. CLARITHROMYCIN. [Concomitant]
     Active Substance: CLARITHROMYCIN
     Indication: PULMONARY ALVEOLAR HAEMORRHAGE
  34. METHYLPREDNISOLONE. [Suspect]
     Active Substance: METHYLPREDNISOLONE
     Dosage: 3 PULSES 500 MG EACH DAILY FOR 3 DAYS
     Route: 065
     Dates: start: 201408
  35. METHYLPREDNISOLONE. [Suspect]
     Active Substance: METHYLPREDNISOLONE
     Dosage: 750 MG
     Route: 065
  36. AMOXICILLIN. [Concomitant]
     Active Substance: AMOXICILLIN
     Indication: ANTIBIOTIC THERAPY
     Route: 065
  37. CLAVULANIC ACID [Concomitant]
     Active Substance: CLAVULANIC ACID
     Indication: ANTIBIOTIC THERAPY
     Route: 065

REACTIONS (13)
  - Respiratory failure [Unknown]
  - Pulmonary alveolar haemorrhage [Recovering/Resolving]
  - Therapeutic response decreased [Recovering/Resolving]
  - Disease recurrence [Recovering/Resolving]
  - Osteoporosis [Unknown]
  - Pneumonia [Unknown]
  - Pathological fracture [Unknown]
  - Vitamin D deficiency [Unknown]
  - Product use in unapproved indication [Unknown]
  - Haemoptysis [Unknown]
  - Rib fracture [Unknown]
  - Off label use [Unknown]
  - Multiple fractures [Unknown]

NARRATIVE: CASE EVENT DATE: 201504
